FAERS Safety Report 19919256 (Version 2)
Quarter: 2021Q4

REPORT INFORMATION
  Report Type: Report from Study
  Country: BR (occurrence: BR)
  Receive Date: 20211004
  Receipt Date: 20211027
  Transmission Date: 20220303
  Serious: No
  Sender: FDA-Public Use
  Company Number: NVSC2021BR202600

PATIENT
  Age: 49 Year
  Sex: Female
  Weight: 80 kg

DRUGS (2)
  1. KISQALI [Suspect]
     Active Substance: RIBOCICLIB
     Indication: Product used for unknown indication
     Dosage: 3 DF, QD (USE FOR 21 DAYS AND PAUSE FOR 7 DAYS)
     Route: 065
     Dates: start: 20210827
  2. ZOLADEX [Concomitant]
     Active Substance: GOSERELIN ACETATE
     Indication: Product used for unknown indication
     Dosage: UNK (ASTRAZENECA)
     Route: 065
     Dates: start: 20210827

REACTIONS (18)
  - Decreased immune responsiveness [Recovered/Resolved]
  - Dry mouth [Recovered/Resolved]
  - Hot flush [Unknown]
  - Bone pain [Unknown]
  - Pain in extremity [Recovered/Resolved]
  - Fatigue [Recovered/Resolved]
  - Pharyngitis [Unknown]
  - Rhinitis [Unknown]
  - Sinusitis [Unknown]
  - Nasal dryness [Unknown]
  - Muscular weakness [Unknown]
  - Peripheral swelling [Unknown]
  - Overweight [Unknown]
  - Hypersomnia [Unknown]
  - Ill-defined disorder [Recovering/Resolving]
  - Arthralgia [Unknown]
  - Stomatitis [Recovered/Resolved]
  - Rhinorrhoea [Unknown]

NARRATIVE: CASE EVENT DATE: 20210827
